FAERS Safety Report 9120005 (Version 1)
Quarter: 2013Q1

REPORT INFORMATION
  Report Type: Spontaneous
  Country: US (occurrence: US)
  Receive Date: 20130226
  Receipt Date: 20130226
  Transmission Date: 20140127
  Serious: No
  Sender: FDA-Public Use
  Company Number: US-BAYER-2013-020478

PATIENT
  Age: 34 Year
  Sex: Female
  Weight: 49.89 kg

DRUGS (1)
  1. ALEVE CAPLET/TABLET,MIDOL EXTENDED RELIEF CAPLET [Suspect]
     Dosage: 2 DF, QD
     Route: 048
     Dates: start: 2011, end: 2013

REACTIONS (2)
  - Dysgeusia [Not Recovered/Not Resolved]
  - Incorrect drug administration duration [None]
